FAERS Safety Report 4831126-6 (Version None)
Quarter: 2005Q4

REPORT INFORMATION
  Report Type: 
  Country: None (occurrence: None)
  Receive Date: 20051114
  Receipt Date: 20051028
  Transmission Date: 20060501
  Serious: Yes (Other)
  Sender: FDA-Public Use
  Company Number: 2005RR-01020

PATIENT
  Age: 55 Year
  Sex: Female

DRUGS (4)
  1. ACETAMINOPHEN [Suspect]
  2. PAROXETINE HYDROCHLORIDE [Suspect]
     Indication: DEPRESSION
     Dosage: 40 MG QD ORAL
     Route: 048
     Dates: start: 20041201, end: 20050601
  3. DIAZEPAM [Concomitant]
  4. NITRAZEPAM [Concomitant]

REACTIONS (33)
  - ADJUSTMENT DISORDER [None]
  - AGITATION [None]
  - ALCOHOLISM [None]
  - ALOPECIA [None]
  - ANGER [None]
  - BLOOD CORTISOL INCREASED [None]
  - CONFUSIONAL STATE [None]
  - CONVERSION DISORDER [None]
  - DECREASED APPETITE [None]
  - DEMENTIA [None]
  - DEPRESSION [None]
  - DEPRESSIVE SYMPTOM [None]
  - EMOTIONAL DISORDER [None]
  - FEAR [None]
  - FEELING ABNORMAL [None]
  - GENERAL PHYSICAL HEALTH DETERIORATION [None]
  - HALLUCINATION [None]
  - HALLUCINATION, AUDITORY [None]
  - HISTRIONIC PERSONALITY DISORDER [None]
  - HYPERHIDROSIS [None]
  - INCOHERENT [None]
  - INSOMNIA [None]
  - IRRITABILITY [None]
  - LIVER DISORDER [None]
  - MANIA [None]
  - MOOD SWINGS [None]
  - OVERDOSE [None]
  - PERSONALITY CHANGE [None]
  - SLEEP DISORDER [None]
  - SUICIDAL IDEATION [None]
  - SUICIDE ATTEMPT [None]
  - WEIGHT DECREASED [None]
  - WEIGHT INCREASED [None]
